FAERS Safety Report 9836219 (Version 2)
Quarter: 2014Q1

REPORT INFORMATION
  Report Type: Spontaneous
  Country: US (occurrence: US)
  Receive Date: 20140123
  Receipt Date: 20140220
  Transmission Date: 20141002
  Serious: No
  Sender: FDA-Public Use
  Company Number: US-009507513-1401USA004425

PATIENT
  Sex: Female

DRUGS (2)
  1. DULERA [Suspect]
     Dosage: UNK
     Route: 055
     Dates: start: 1999
  2. DULERA [Suspect]
     Dosage: UNK
     Route: 055

REACTIONS (3)
  - Dysgeusia [Unknown]
  - Dizziness [Unknown]
  - Product taste abnormal [Unknown]
